FAERS Safety Report 5587671-1 (Version None)
Quarter: 2008Q1

REPORT INFORMATION
  Report Type: 
  Country: None (occurrence: None)
  Receive Date: 20080108
  Receipt Date: 20080102
  Transmission Date: 20080703
  Serious: Yes (Death)
  Sender: FDA-Public Use
  Company Number: 163-21880-08010157

PATIENT
  Age: 72 Year
  Sex: Female

DRUGS (1)
  1. REVLIMID [Suspect]
     Indication: NON-HODGKIN'S LYMPHOMA
     Dosage: X21 DAYS EVERY 28 DAYS, ORAL
     Route: 048
     Dates: start: 20070501

REACTIONS (1)
  - FULL BLOOD COUNT DECREASED [None]
